FAERS Safety Report 14744305 (Version 2)
Quarter: 2018Q2

REPORT INFORMATION
  Report Type: Report from Study
  Country: US (occurrence: US)
  Receive Date: 20180411
  Receipt Date: 20180505
  Transmission Date: 20180711
  Serious: Yes (Hospitalization)
  Sender: FDA-Public Use
  Company Number: US-SUN PHARMACEUTICAL INDUSTRIES LTD-2017US-150634

PATIENT
  Age: 74 Year
  Sex: Male
  Weight: 101.1 kg

DRUGS (3)
  1. BACTRIM DS [Suspect]
     Active Substance: SULFAMETHOXAZOLE\TRIMETHOPRIM
     Indication: ANTIFUNGAL PROPHYLAXIS
     Dosage: 800/160MG, QD
     Route: 048
     Dates: start: 20170417, end: 20170628
  2. INCB050465 [Suspect]
     Active Substance: PARSACLISIB HYDROCHLORIDE
     Indication: ANAL CANCER METASTATIC
     Dosage: UNK
     Route: 048
     Dates: start: 20170315, end: 20170714
  3. PEMBROLIZUMAB. [Suspect]
     Active Substance: PEMBROLIZUMAB
     Indication: ANAL CANCER METASTATIC
     Dosage: 200 MG, Q3 WEEKS
     Route: 042
     Dates: start: 20170315, end: 20170714

REACTIONS (1)
  - Haemolytic anaemia [Recovered/Resolved]

NARRATIVE: CASE EVENT DATE: 20170714
